FAERS Safety Report 4469999-1 (Version None)
Quarter: 2004Q3

REPORT INFORMATION
  Report Type: 
  Country: None (occurrence: None)
  Receive Date: 20040917
  Receipt Date: 20040826
  Transmission Date: 20050211
  Serious: Yes (Hospitalization, Other)
  Sender: FDA-Public Use
  Company Number: HQWYE326430JUL03

PATIENT
  Age: 70 Year
  Sex: Male
  Weight: 118.4 kg

DRUGS (1)
  1. CORDARONE [Suspect]
     Indication: ATRIAL FIBRILLATION
     Dosage: 0.5 ML CONTINIOUS INFUSION, INTRAVENOUS
     Route: 042
     Dates: start: 20030722, end: 20030724

REACTIONS (1)
  - INJECTION SITE PHLEBITIS [None]
